FAERS Safety Report 8649331 (Version 2)
Quarter: 2014Q1

REPORT INFORMATION
  Report Type: Spontaneous
  Country: US (occurrence: None)
  Receive Date: 20120323
  Receipt Date: 20140306
  Transmission Date: 20141002
  Serious: Yes (Hospitalization)
  Sender: FDA-Public Use
  Company Number: 163-21880-11082861

PATIENT
  Age: 67 Year
  Sex: Male

DRUGS (20)
  1. REVLIMID [Suspect]
     Indication: PLASMA CELL MYELOMA
     Dosage: 25 MG, DAILY X 21 DAYS, PO
     Route: 048
     Dates: start: 20110502, end: 20110627
  2. ZOMETA [Suspect]
     Indication: PLASMA CELL MYELOMA
     Dosage: 4 MG, IV
     Route: 042
     Dates: start: 20090318, end: 20110531
  3. CORDARONE [Concomitant]
  4. DECADRON [Concomitant]
  5. COUMADIN [Concomitant]
  6. DIOVAN [Concomitant]
  7. GLIPIZIDE [Concomitant]
  8. RANITIDINE [Concomitant]
  9. VERAPAMIL HYDROCHLORIDE [Concomitant]
  10. LOVAZA (OMEGA-3 MARINE TRIGLYCERIDES)(UNKNOWN) [Concomitant]
  11. PROPAFENONE (PROPAFENONE)(150 MILLIGRAM, UNKNOWN) [Concomitant]
  12. TAMSULOSIN HYDROCHLORIDE [Concomitant]
  13. VESICARE (SOLIFENACIN SUCCINATE)(UNKNOWN) [Concomitant]
  14. VITAMIN D (ERGOCALCIFEROL)(UNKNOWN) [Concomitant]
  15. B COMPLEX VITAMINS (BECOSYM FORTE)(UNKNOWN) [Concomitant]
  16. STOOL SOFTENER (DOCUSATE SODIUM)(UNKNOWN) [Concomitant]
  17. INSULIN ASPART (INSULIN ASPART) [Concomitant]
  18. MORPHINE [Concomitant]
  19. OXYCODONE (OXYCODONE) [Concomitant]
  20. TRAMADOL HYDROCHLORIDE [Concomitant]

REACTIONS (6)
  - Arthralgia [None]
  - Atrial fibrillation [None]
  - Anaemia [None]
  - Renal failure [None]
  - Neutropenia [None]
  - Thrombocytopenia [None]
